FAERS Safety Report 9607360 (Version 1)
Quarter: 2013Q4

REPORT INFORMATION
  Report Type: Spontaneous
  Country: US (occurrence: None)
  Receive Date: 20131007
  Receipt Date: 20131007
  Transmission Date: 20140711
  Serious: Yes (Hospitalization, Other)
  Sender: FDA-Public Use
  Company Number: 2013-001159

PATIENT
  Age: 72 Year
  Sex: Female

DRUGS (18)
  1. ACTONEL (RISEDRONATE SODIUM) TABLET, 150MG [Suspect]
     Dosage: 150 MG ONCE MONTHLY, ORAL
     Route: 048
     Dates: start: 20091215, end: 201003
  2. ACTONEL (RISEDRONATE SODIUM) TABLET, 35MG [Suspect]
     Dosage: 35 MG ONCE WEEKLY, ORAL
     Route: 048
     Dates: start: 20030121, end: 200911
  3. ACTONEL [Suspect]
     Dosage: 30 MG ONCE WEEKLY, ORAL
     Route: 048
     Dates: start: 200201, end: 200301
  4. BONIVA [Suspect]
     Dosage: 150 MG ONCE MONTHLY, ORAL
     Route: 048
     Dates: start: 20100322
  5. PREMARIN (ESTROGENS CONJUGATED) [Concomitant]
  6. HYDROCHLOROTHIAZIDE (HYDROCHLOROTHIAZIDE) [Concomitant]
  7. ACCUPRIL (QUINAPRIL HYDROCHLORIDE0 [Concomitant]
  8. BENICAR (OLMESARTAN MEDOXOMIL) [Concomitant]
  9. PRAVASTATIN (PRAVASTATIN) [Concomitant]
  10. LEXAPRO (ESCITALOPRAM OXALATE) [Concomitant]
  11. FELDENE (PIROXICAM) [Concomitant]
  12. NAPROXEN (NAPROXEN) [Concomitant]
  13. PENTAZOCINE/NALOXONE (NALOXONE HYDROCHLORIDE, PENTAZOCINE HYDROCHLORIDE) [Concomitant]
  14. OMEPRAZOLE (OMEPRAZOLE) [Concomitant]
  15. FLONASE (FLUTICASONE PROPIONATE) [Concomitant]
  16. NASONEX (MOMETASONE FUROATE) [Concomitant]
  17. CLARITIN (LORATADINE) [Concomitant]
  18. ZYRTEC (CETIRIZINE HYDROCHLORIDE) [Concomitant]

REACTIONS (6)
  - Atypical femur fracture [None]
  - Comminuted fracture [None]
  - Fracture displacement [None]
  - Muscle spasms [None]
  - Femur fracture [None]
  - Fall [None]
